FAERS Safety Report 7353517-4 (Version None)
Quarter: 2011Q1

REPORT INFORMATION
  Report Type: 
  Country: None (occurrence: None)
  Receive Date: 20110315
  Receipt Date: 20110311
  Transmission Date: 20110831
  Serious: Yes (Other)
  Sender: FDA-Public Use
  Company Number: US-PFIZER INC-2010174687

PATIENT
  Sex: Female
  Weight: 87.089 kg

DRUGS (5)
  1. CELEBREX [Suspect]
     Indication: TENDONITIS
     Dosage: 200 MG, 1X/DAY
     Route: 048
     Dates: start: 20101207, end: 20101215
  2. JANUMET [Concomitant]
     Indication: TYPE 2 DIABETES MELLITUS
     Dosage: 50MG/500 MG
  3. VITAMIN D [Concomitant]
     Dosage: UNK
  4. ENALAPRIL MALEATE [Concomitant]
     Dosage: 2.5 MG, UNK
  5. CRESTOR [Concomitant]
     Dosage: 5 MG, UNK

REACTIONS (4)
  - SKIN FISSURES [None]
  - WRIST FRACTURE [None]
  - DRY SKIN [None]
  - PRURITUS GENERALISED [None]
